FAERS Safety Report 16478959 (Version 1)
Quarter: 2019Q2

REPORT INFORMATION
  Report Type: Spontaneous
  Country: CN (occurrence: CN)
  Receive Date: 20190626
  Receipt Date: 20190626
  Transmission Date: 20190711
  Serious: Yes (Death)
  Sender: FDA-Public Use
  Company Number: CN-PFIZER INC-2019271912

PATIENT
  Age: 41 Year
  Sex: Female

DRUGS (1)
  1. IBRANCE [Suspect]
     Active Substance: PALBOCICLIB
     Indication: BREAST CANCER
     Dosage: 1 TABLET, 1X/DAY(TAKE 21 DAYS AND STOP FOR 7 DAYS)
     Route: 048
     Dates: start: 20181015

REACTIONS (2)
  - Death [Fatal]
  - Nasopharyngitis [Unknown]
